FAERS Safety Report 13523198 (Version 1)
Quarter: 2017Q2

REPORT INFORMATION
  Report Type: Spontaneous
  Country: NO (occurrence: NO)
  Receive Date: 20170508
  Receipt Date: 20170508
  Transmission Date: 20170830
  Serious: Yes (Disabling)
  Sender: FDA-Public Use
  Company Number: NO-MYLANLABS-2017M1027200

PATIENT

DRUGS (1)
  1. ATORVASTATIN MYLAN [Suspect]
     Active Substance: ATORVASTATIN
     Indication: BLOOD CHOLESTEROL INCREASED
     Dosage: 20 MG, QD
     Dates: start: 20170112, end: 20170412

REACTIONS (6)
  - Malaise [Unknown]
  - Erectile dysfunction [Unknown]
  - Muscle disorder [Unknown]
  - Sexual dysfunction [Unknown]
  - Syncope [Recovered/Resolved with Sequelae]
  - Tremor [Unknown]

NARRATIVE: CASE EVENT DATE: 201702
